FAERS Safety Report 4679343-2 (Version None)
Quarter: 2005Q2

REPORT INFORMATION
  Report Type: 
  Country: None (occurrence: None)
  Receive Date: 20050602
  Receipt Date: 20050411
  Transmission Date: 20051028
  Serious: Yes (Other)
  Sender: FDA-Public Use
  Company Number: US-AMGEN-KDL132617

PATIENT
  Sex: Female

DRUGS (1)
  1. ENBREL [Suspect]
     Indication: ANKYLOSING SPONDYLITIS
     Route: 058
     Dates: start: 20050324, end: 20050407

REACTIONS (10)
  - ARTHRALGIA [None]
  - BACK PAIN [None]
  - DYSPNOEA EXERTIONAL [None]
  - GENERALISED ERYTHEMA [None]
  - JOINT SWELLING [None]
  - PAIN IN EXTREMITY [None]
  - PLATELET COUNT DECREASED [None]
  - RASH ERYTHEMATOUS [None]
  - SERUM SICKNESS [None]
  - WHITE BLOOD CELL COUNT DECREASED [None]
